FAERS Safety Report 6963855-2 (Version None)
Quarter: 2010Q3

REPORT INFORMATION
  Report Type: 
  Country: None (occurrence: None)
  Receive Date: 20100830
  Receipt Date: 20100816
  Transmission Date: 20110219
  Serious: Yes (Hospitalization)
  Sender: FDA-Public Use
  Company Number: B0670940A

PATIENT
  Age: 58 Year
  Sex: Male
  Weight: 129.7287 kg

DRUGS (5)
  1. AMOXICILLIN AND CLAVULANATE POTASSIUM [Suspect]
     Indication: OROPHARYNGEAL PAIN
     Dosage: 1 GRAM, SINGLE DOSE, ORAL
     Route: 048
  2. AMOXICILLIN TRIHYDRATE [Suspect]
     Indication: TOOTHACHE
     Dosage: 1 GRAM(S), SINGLE DOSE,
  3. ZERINOL [Concomitant]
  4. CANDESARTAN CILEXETIL HCT [Concomitant]
  5. ROSIGLIT.MAL+METFORM.HCL [Concomitant]

REACTIONS (19)
  - ABDOMINAL PAIN UPPER [None]
  - ACUTE MYOCARDIAL INFARCTION [None]
  - ANGIOEDEMA [None]
  - ARTERIOSCLEROSIS CORONARY ARTERY [None]
  - ASTHENIA [None]
  - CHEST PAIN [None]
  - CORONARY ARTERY STENOSIS [None]
  - CORONARY ARTERY THROMBOSIS [None]
  - FEELING HOT [None]
  - FLUSHING [None]
  - HYPOTENSION [None]
  - LEFT VENTRICULAR HYPERTROPHY [None]
  - NERVOUS SYSTEM DISORDER [None]
  - RENAL FAILURE ACUTE [None]
  - RESPIRATORY FAILURE [None]
  - TACHYCARDIA [None]
  - TYPE I HYPERSENSITIVITY [None]
  - URTICARIA [None]
  - VENTRICULAR FIBRILLATION [None]
